FAERS Safety Report 6671065-1 (Version None)
Quarter: 2010Q2

REPORT INFORMATION
  Report Type: 
  Country: None (occurrence: None)
  Receive Date: 20100407
  Receipt Date: 20100330
  Transmission Date: 20101027
  Serious: Yes (Hospitalization, Other)
  Sender: FDA-Public Use
  Company Number: US-BAXTER-2010BH008329

PATIENT
  Age: 42 Year
  Sex: Female

DRUGS (12)
  1. GAMMAGARD LIQUID [Suspect]
     Indication: CHRONIC INFLAMMATORY DEMYELINATING POLYRADICULONEUROPATHY
     Route: 042
     Dates: start: 20100225, end: 20100225
  2. GAMMAGARD LIQUID [Suspect]
     Indication: OFF LABEL USE
     Route: 042
     Dates: start: 20100225, end: 20100225
  3. GAMMAGARD LIQUID [Suspect]
     Route: 042
     Dates: start: 20100225, end: 20100225
  4. GAMMAGARD LIQUID [Suspect]
     Route: 042
     Dates: start: 20100225, end: 20100225
  5. GAMMAGARD LIQUID [Suspect]
     Route: 042
     Dates: start: 20100305, end: 20100305
  6. GAMMAGARD LIQUID [Suspect]
     Route: 042
     Dates: start: 20100305, end: 20100305
  7. GAMMAGARD LIQUID [Suspect]
     Route: 042
     Dates: start: 20100305, end: 20100305
  8. GAMMAGARD LIQUID [Suspect]
     Route: 042
     Dates: start: 20100305, end: 20100305
  9. GAMMAGARD LIQUID [Suspect]
     Route: 042
     Dates: start: 20100310, end: 20100310
  10. GAMMAGARD LIQUID [Suspect]
     Route: 042
     Dates: start: 20100310, end: 20100310
  11. GAMMAGARD LIQUID [Suspect]
     Route: 042
     Dates: start: 20100310, end: 20100310
  12. GAMMAGARD LIQUID [Suspect]
     Route: 042
     Dates: start: 20100310, end: 20100310

REACTIONS (9)
  - BONE PAIN [None]
  - HEADACHE [None]
  - HYPERHIDROSIS [None]
  - MENINGITIS ASEPTIC [None]
  - NECK PAIN [None]
  - PALPITATIONS [None]
  - PYREXIA [None]
  - VISION BLURRED [None]
  - VOMITING [None]
